FAERS Safety Report 8604707-1 (Version None)
Quarter: 2012Q3

REPORT INFORMATION
  Report Type: 
  Country: None (occurrence: None)
  Receive Date: 20120820
  Receipt Date: 20120816
  Transmission Date: 20120928
  Serious: Yes (Hospitalization)
  Sender: FDA-Public Use
  Company Number: PHHY2012BR069707

PATIENT
  Sex: Female

DRUGS (3)
  1. FORMOTEROL FUMARATE [Suspect]
     Indication: HYPERSENSITIVITY
     Dosage: 1 DF, BID
  2. FORMOTEROL FUMARATE [Suspect]
     Indication: ASTHMA
     Dosage: 1 DF, TID
  3. ARADOIS H [Concomitant]

REACTIONS (2)
  - BRONCHOSPASM [None]
  - LEUKOCYTOSIS [None]
